FAERS Safety Report 6106965-4 (Version None)
Quarter: 2009Q1

REPORT INFORMATION
  Report Type: 
  Country: None (occurrence: None)
  Receive Date: 20090309
  Receipt Date: 20090303
  Transmission Date: 20090719
  Serious: No
  Sender: FDA-Public Use
  Company Number: US-JNJFOC-20090301175

PATIENT
  Sex: Male
  Weight: 79.38 kg

DRUGS (5)
  1. DURAGESIC-100 [Suspect]
     Dosage: AS NEEDED
     Route: 062
  2. DURAGESIC-100 [Suspect]
     Indication: PAIN
     Route: 062
  3. XANAX [Concomitant]
     Indication: ANXIETY
     Route: 048
  4. ROXICODONE [Concomitant]
     Indication: PAIN
     Route: 048
  5. NORCO [Concomitant]
     Indication: PAIN
     Route: 048

REACTIONS (5)
  - DRUG PRESCRIBING ERROR [None]
  - EXPIRED DRUG ADMINISTERED [None]
  - LETHARGY [None]
  - PAIN [None]
  - SOMNOLENCE [None]
